FAERS Safety Report 4571816-6 (Version None)
Quarter: 2005Q1

REPORT INFORMATION
  Report Type: 
  Country: None (occurrence: None)
  Receive Date: 20050207
  Receipt Date: 20041101
  Transmission Date: 20050727
  Serious: Yes (Hospitalization)
  Sender: FDA-Public Use
  Company Number: US-MERCK-0411USA00262

PATIENT
  Age: 50 Year
  Sex: Female

DRUGS (7)
  1. VIOXX [Suspect]
     Indication: ARTHRITIS
     Route: 048
     Dates: start: 20020101, end: 20040901
  2. HUMALOG [Concomitant]
     Route: 065
  3. CIMETIDINE [Concomitant]
     Route: 065
  4. METFORMIN [Concomitant]
     Route: 065
  5. VERAPAMIL [Concomitant]
     Route: 065
  6. METOCLOPRAMIDE [Concomitant]
     Route: 065
  7. BENAZEPRIL HYDROCHLORIDE [Concomitant]
     Route: 065

REACTIONS (6)
  - DRUG INEFFECTIVE [None]
  - GASTRIC ULCER [None]
  - LOCALISED INFECTION [None]
  - PAIN IN EXTREMITY [None]
  - URINARY TRACT INFECTION [None]
  - UTERINE LEIOMYOMA [None]
